FAERS Safety Report 16114386 (Version 2)
Quarter: 2021Q2

REPORT INFORMATION
  Report Type: Spontaneous
  Country: US (occurrence: US)
  Receive Date: 20190325
  Receipt Date: 20210413
  Transmission Date: 20210716
  Serious: No
  Sender: FDA-Public Use
  Company Number: US-ALLERGAN-1907745US

PATIENT
  Age: 65 Year
  Sex: Female

DRUGS (3)
  1. MASCARA [Concomitant]
     Dosage: UNK, QAM
  2. GENTEAL MILD [Concomitant]
     Active Substance: HYPROMELLOSE 2910 (4000 MPA.S)
     Indication: EYE DISCHARGE
     Dosage: UNK
     Route: 047
     Dates: start: 201902
  3. LATISSE [Suspect]
     Active Substance: BIMATOPROST
     Indication: PRODUCT USED FOR UNKNOWN INDICATION
     Dosage: 2 GTT, QHS
     Route: 061

REACTIONS (4)
  - Dry eye [Unknown]
  - Photophobia [Not Recovered/Not Resolved]
  - Product dose omission issue [Unknown]
  - Eye discharge [Unknown]

NARRATIVE: CASE EVENT DATE: 201902
